FAERS Safety Report 7232580-5 (Version None)
Quarter: 2011Q1

REPORT INFORMATION
  Report Type: 
  Country: None (occurrence: None)
  Receive Date: 20110119
  Receipt Date: 20110110
  Transmission Date: 20110831
  Serious: Yes (Hospitalization, Other)
  Sender: FDA-Public Use
  Company Number: US-PFIZER INC-2010086359

PATIENT
  Sex: Female

DRUGS (4)
  1. AMBIEN [Concomitant]
     Indication: SLEEP DISORDER
     Dosage: UNK
     Dates: start: 20060101
  2. LEXAPRO [Concomitant]
     Indication: DEPRESSION
     Dosage: UNK
     Dates: end: 20100601
  3. ESTRACE [Concomitant]
     Indication: HORMONE REPLACEMENT THERAPY
     Dosage: UNK
     Dates: start: 19940101
  4. CHANTIX [Suspect]
     Indication: SMOKING CESSATION THERAPY
     Dosage: 1 MG CONTINUOUS MONTH PACK
     Dates: start: 20090501, end: 20091101

REACTIONS (15)
  - MAJOR DEPRESSION [None]
  - BIPOLAR DISORDER [None]
  - AMNESIA [None]
  - PANIC ATTACK [None]
  - SUICIDE ATTEMPT [None]
  - PARANOIA [None]
  - ANXIETY [None]
  - ANGER [None]
  - INTENTIONAL OVERDOSE [None]
  - NAUSEA [None]
  - IMPULSIVE BEHAVIOUR [None]
  - AGGRESSION [None]
  - ABNORMAL DREAMS [None]
  - HEADACHE [None]
  - ABNORMAL BEHAVIOUR [None]
